FAERS Safety Report 17437430 (Version 1)
Quarter: 2020Q1

REPORT INFORMATION
  Report Type: Spontaneous
  Country: FR (occurrence: FR)
  Receive Date: 20200219
  Receipt Date: 20200219
  Transmission Date: 20200409
  Serious: Yes (Other)
  Sender: FDA-Public Use
  Company Number: FR-NOVOPROD-711999

PATIENT
  Age: 68 Year
  Sex: Female
  Weight: 119 kg

DRUGS (8)
  1. LASILIX [FUROSEMIDE] [Suspect]
     Active Substance: FUROSEMIDE
     Indication: HYPONATRAEMIA
     Dosage: 20 MG, QD
     Route: 042
     Dates: start: 20200105, end: 20200108
  2. VENOFER [Suspect]
     Active Substance: IRON SUCROSE
     Indication: IRON DEFICIENCY
     Dosage: 200 MG, QD
     Route: 042
     Dates: start: 20191231, end: 20200106
  3. DEBRIDAT [TRIMEBUTINE] [Suspect]
     Active Substance: TRIMEBUTINE
     Indication: GASTROINTESTINAL MOTILITY DISORDER
     Dosage: 50 MG, QD
     Route: 048
     Dates: start: 20200102, end: 20200108
  4. NOVORAPID [Suspect]
     Active Substance: INSULIN ASPART
     Indication: DIABETES MELLITUS
     Dosage: UNK
     Route: 058
     Dates: start: 20191018
  5. TOPALGIC [TRAMADOL HYDROCHLORIDE] [Suspect]
     Active Substance: TRAMADOL HYDROCHLORIDE
     Indication: ANALGESIC THERAPY
     Dosage: 100 MG, QD
     Route: 042
     Dates: start: 20191220, end: 20200108
  6. IPRATROPIUM ARROW [Suspect]
     Active Substance: IPRATROPIUM
     Indication: RESPIRATORY DISORDER
     Dosage: 0.5 MG, QD
     Route: 055
     Dates: start: 20191118
  7. BINOCRIT [Suspect]
     Active Substance: ERYTHROPOIETIN
     Indication: ANAEMIA
     Dosage: 10000 IU, QD
     Route: 042
     Dates: start: 20200102, end: 20200108
  8. PANTOPRAZOLE SODIUM. [Suspect]
     Active Substance: PANTOPRAZOLE SODIUM
     Indication: PRODUCT USED FOR UNKNOWN INDICATION
     Dosage: 40 MG, QD
     Route: 042
     Dates: start: 20191224

REACTIONS (1)
  - Sinoatrial block [Recovered/Resolved]

NARRATIVE: CASE EVENT DATE: 20200106
